FAERS Safety Report 7190254-3 (Version None)
Quarter: 2010Q4

REPORT INFORMATION
  Report Type: 
  Country: None (occurrence: None)
  Receive Date: 20101213
  Receipt Date: 20101202
  Transmission Date: 20110411
  Serious: Yes (Hospitalization, Other)
  Sender: FDA-Public Use
  Company Number: 2010SP004922

PATIENT
  Age: 27 Year
  Sex: Female
  Weight: 52.1637 kg

DRUGS (2)
  1. NUVARING [Suspect]
     Indication: CONTRACEPTION
     Dates: start: 20030101, end: 20060101
  2. IBUPROFEN [Concomitant]

REACTIONS (17)
  - ARTHRALGIA [None]
  - ASTHENIA [None]
  - BRONCHITIS [None]
  - DEEP VEIN THROMBOSIS [None]
  - FALL [None]
  - HYPOAESTHESIA [None]
  - JOINT EFFUSION [None]
  - MUSCULOSKELETAL PAIN [None]
  - PAIN IN EXTREMITY [None]
  - PELVIC FRACTURE [None]
  - RADIUS FRACTURE [None]
  - RASH ERYTHEMATOUS [None]
  - ROAD TRAFFIC ACCIDENT [None]
  - URINARY BLADDER RUPTURE [None]
  - VENOMOUS STING [None]
  - WEIGHT DECREASED [None]
  - WRIST FRACTURE [None]
